FAERS Safety Report 8239684-9 (Version None)
Quarter: 2012Q1

REPORT INFORMATION
  Report Type: 
  Country: None (occurrence: None)
  Receive Date: 20120328
  Receipt Date: 20120321
  Transmission Date: 20120608
  Serious: Yes (Other)
  Sender: FDA-Public Use
  Company Number: US-US-EMD SERONO, INC.-7120940

PATIENT
  Sex: Female
  Weight: 52 kg

DRUGS (3)
  1. REBIF [Suspect]
     Indication: PRODUCT USED FOR UNKNOWN INDICATION
     Route: 058
     Dates: start: 20110205
  2. SEIZURE PILLS [Concomitant]
     Indication: PRODUCT USED FOR UNKNOWN INDICATION
  3. THYROID PILLS [Concomitant]
     Indication: PRODUCT USED FOR UNKNOWN INDICATION

REACTIONS (2)
  - THROMBOSIS [None]
  - PAIN IN EXTREMITY [None]
